FAERS Safety Report 10581165 (Version 2)
Quarter: 2014Q4

REPORT INFORMATION
  Report Type: Spontaneous
  Country: GB (occurrence: None)
  Receive Date: 20141110
  Receipt Date: 20141219
  Transmission Date: 20150529
  Serious: Yes (Other)
  Sender: FDA-Public Use
  Company Number: GB2014GSK014209

PATIENT
  Sex: Male

DRUGS (1)
  1. SEROXAT (PAROXETINE HYDROCHLORIDE) UNKNOWN [Suspect]
     Active Substance: PAROXETINE HYDROCHLORIDE
     Indication: DEPRESSION
     Dates: start: 2002

REACTIONS (13)
  - Confusional state [None]
  - Unevaluable event [None]
  - Bipolar I disorder [None]
  - Parkinsonism [None]
  - Transient ischaemic attack [None]
  - Dementia [None]
  - Paranoia [None]
  - Bradykinesia [None]
  - Memory impairment [None]
  - Aggression [None]
  - Brain injury [None]
  - Brain death [None]
  - Thinking abnormal [None]

NARRATIVE: CASE EVENT DATE: 201402
